FAERS Safety Report 12848846 (Version 1)
Quarter: 2016Q4

REPORT INFORMATION
  Report Type: Spontaneous
  Country: US (occurrence: US)
  Receive Date: 20161014
  Receipt Date: 20161014
  Transmission Date: 20170207
  Serious: No
  Sender: FDA-Public Use
  Company Number: US-009507513-1609USA012253

PATIENT
  Age: 19 Year
  Sex: Female
  Weight: 113.38 kg

DRUGS (1)
  1. NEXPLANON [Suspect]
     Active Substance: ETONOGESTREL
     Dosage: UNK
     Route: 059
     Dates: start: 20151124

REACTIONS (4)
  - Nerve compression [Unknown]
  - Pain in extremity [Unknown]
  - Migration of implanted drug [Unknown]
  - Complication associated with device [Unknown]

NARRATIVE: CASE EVENT DATE: 20160922
